FAERS Safety Report 8806979 (Version 1)
Quarter: 2012Q4

REPORT INFORMATION
  Report Type: 
  Country: JP (occurrence: JP)
  Receive Date: 20120925
  Receipt Date: 20120925
  Transmission Date: 20130627
  Serious: Yes (Other)
  Sender: FDA-Public Use
  Company Number: JP-VERTEX PHARMACEUTICAL INC.-2012-020982

PATIENT
  Age: 50 Year
  Sex: Male

DRUGS (4)
  1. TELAVIC [Suspect]
     Indication: HEPATITIS C
     Dosage: 2250 mg, UNK
     Route: 048
  2. TELAVIC [Suspect]
     Dosage: 1500 UNK, UNK
  3. PEGINTERFERON ALFA-2B [Suspect]
     Indication: HEPATITIS C
     Dosage: 1.5 ?g/kg, UNK
  4. PEGINTERFERON ALFA-2B [Suspect]
     Dosage: UNK

REACTIONS (6)
  - Rash [Recovered/Resolved]
  - Renal function test abnormal [Not Recovered/Not Resolved]
  - Blood urea increased [Unknown]
  - Blood creatinine increased [Unknown]
  - Blood uric acid increased [Unknown]
  - Pruritus [Recovered/Resolved]
